FAERS Safety Report 6454857-3 (Version None)
Quarter: 2009Q4

REPORT INFORMATION
  Report Type: 
  Country: None (occurrence: None)
  Receive Date: 20091124
  Receipt Date: 20091114
  Transmission Date: 20100525
  Serious: Yes (Disabling, Other)
  Sender: FDA-Public Use
  Company Number: US-PFIZER INC-2009300352

PATIENT
  Age: 79 Year
  Sex: Male
  Weight: 86.168 kg

DRUGS (1)
  1. LIPITOR [Suspect]
     Indication: VASCULAR GRAFT
     Dosage: 80 MG, UNK
     Route: 048
     Dates: start: 20060101, end: 20090101

REACTIONS (3)
  - HYPOAESTHESIA [None]
  - MUSCULAR WEAKNESS [None]
  - MYOCARDIAL INFARCTION [None]
